FAERS Safety Report 15284519 (Version 1)
Quarter: 2018Q3

REPORT INFORMATION
  Report Type: Spontaneous
  Country: US (occurrence: US)
  Receive Date: 20180801
  Receipt Date: 20180801
  Transmission Date: 20181010
  Serious: Yes (Hospitalization)
  Sender: FDA-Public Use
  Company Number: None

PATIENT
  Age: 25 Year
  Sex: Female
  Weight: 56.7 kg

DRUGS (1)
  1. ARMODAFINIL 150MG [Suspect]
     Active Substance: ARMODAFINIL
     Indication: NARCOLEPSY
     Dosage: ONE TABLET DAILY BY MONTH
     Route: 048
     Dates: start: 20180626, end: 20180712

REACTIONS (3)
  - Stevens-Johnson syndrome [None]
  - Erosive oesophagitis [None]
  - Oral mucosa erosion [None]

NARRATIVE: CASE EVENT DATE: 20180717
